FAERS Safety Report 16080878 (Version 1)
Quarter: 2019Q1

REPORT INFORMATION
  Report Type: Spontaneous
  Country: FR (occurrence: FR)
  Receive Date: 20190316
  Receipt Date: 20190316
  Transmission Date: 20190418
  Serious: Yes (Hospitalization, Other)
  Sender: FDA-Public Use
  Company Number: FR-BION-007871

PATIENT
  Age: 60 Year
  Sex: Male

DRUGS (1)
  1. METHYLPHENIDATE/METHYLPHENIDATE HYDROCHLORIDE [Suspect]
     Active Substance: METHYLPHENIDATE HYDROCHLORIDE
     Dosage: HE WEEKLY SNORTED METHYLPHENIDATE

REACTIONS (2)
  - Drug abuse [Unknown]
  - Suicidal ideation [Unknown]
